FAERS Safety Report 19148582 (Version 2)
Quarter: 2021Q2

REPORT INFORMATION
  Report Type: Spontaneous
  Country: US (occurrence: US)
  Receive Date: 20210416
  Receipt Date: 20210420
  Transmission Date: 20210717
  Serious: Yes (Hospitalization)
  Sender: FDA-Public Use
  Company Number: US-ELI_LILLY_AND_COMPANY-US202104005578

PATIENT
  Sex: Male

DRUGS (1)
  1. FORTEO [Suspect]
     Active Substance: TERIPARATIDE
     Indication: OSTEOPOROSIS
     Dosage: 20 UG, UNKNOWN
     Route: 058
     Dates: start: 202004

REACTIONS (6)
  - Blood corticotrophin increased [Not Recovered/Not Resolved]
  - Muscular weakness [Unknown]
  - Skin discolouration [Unknown]
  - Feeling abnormal [Unknown]
  - Illness [Unknown]
  - Weight decreased [Unknown]
